FAERS Safety Report 9450548 (Version 1)
Quarter: 2013Q3

REPORT INFORMATION
  Report Type: Report from Study
  Country: AU (occurrence: AU)
  Receive Date: 20130809
  Receipt Date: 20130809
  Transmission Date: 20140515
  Serious: Yes (Other)
  Sender: FDA-Public Use
  Company Number: AU-PFIZER INC-2013227947

PATIENT
  Age: 14 Year
  Sex: 0

DRUGS (11)
  1. CYCLOPHOSPHAMIDE [Suspect]
     Indication: HODGKIN^S DISEASE
     Dosage: UNK
  2. VINCRISTINE SULFATE [Suspect]
     Indication: HODGKIN^S DISEASE
     Dosage: UNK
  3. ADRIAMYCIN [Suspect]
     Indication: HODGKIN^S DISEASE
     Dosage: UNK
  4. ETOPOSIDE [Suspect]
     Indication: HODGKIN^S DISEASE
     Dosage: UNK
  5. IFOSFAMIDE [Suspect]
     Dosage: UNK
  6. DEXAMETHASONE [Suspect]
     Indication: HODGKIN^S DISEASE
     Dosage: UNK
  7. PROCARBAZINE [Suspect]
     Indication: HODGKIN^S DISEASE
     Dosage: UNK
  8. PREDNISOLONE [Suspect]
     Indication: HODGKIN^S DISEASE
     Dosage: UNK
  9. PREDNISOLONE [Suspect]
     Indication: PULMONARY HYPERTENSION
  10. BLEOMYCIN [Suspect]
     Indication: HODGKIN^S DISEASE
     Dosage: UNK
  11. VINBLASTINE [Suspect]
     Indication: HODGKIN^S DISEASE
     Dosage: UNK

REACTIONS (1)
  - Osteonecrosis [Not Recovered/Not Resolved]
